FAERS Safety Report 8925141 (Version 1)
Quarter: 2012Q4

REPORT INFORMATION
  Report Type: Spontaneous
  Country: US (occurrence: None)
  Receive Date: 20121126
  Receipt Date: 20121126
  Transmission Date: 20130627
  Serious: Yes (Other)
  Sender: FDA-Public Use
  Company Number: None

PATIENT
  Age: 48 Year
  Sex: Female
  Weight: 120.66 kg

DRUGS (1)
  1. EMSAM [Suspect]
     Indication: BIPOLAR II DISORDER
     Route: 062
     Dates: start: 20120927, end: 20121118

REACTIONS (5)
  - Skin reaction [None]
  - Application site erythema [None]
  - Application site burn [None]
  - Pruritus [None]
  - Petechiae [None]
